FAERS Safety Report 10176434 (Version 2)
Quarter: 2014Q3

REPORT INFORMATION
  Report Type: Spontaneous
  Country: DE (occurrence: DE)
  Receive Date: 20140516
  Receipt Date: 20140708
  Transmission Date: 20150326
  Serious: Yes (Hospitalization, Other)
  Sender: FDA-Public Use
  Company Number: DE-PFIZER INC-2014128785

PATIENT
  Age: 81 Year
  Sex: Male
  Weight: 84 kg

DRUGS (9)
  1. FENTANYL. [Concomitant]
     Active Substance: FENTANYL
     Indication: HERPES ZOSTER
     Dosage: 50 UG, UNK
  2. VALSARTAN. [Concomitant]
     Active Substance: VALSARTAN
     Indication: HYPERTENSION
     Dosage: 80 MG, UNK
     Route: 048
  3. XARELTO [Concomitant]
     Active Substance: RIVAROXABAN
     Indication: STENT PLACEMENT
     Dosage: 10 MG, UNK
     Route: 048
  4. FENTANYL. [Concomitant]
     Active Substance: FENTANYL
     Dosage: 75 UG, UNK
     Route: 062
     Dates: start: 201402
  5. AMLODIPINE [Concomitant]
     Active Substance: AMLODIPINE BESYLATE
     Dosage: 5 MG, UNK
     Route: 048
  6. FENTANYL. [Concomitant]
     Active Substance: FENTANYL
     Indication: PAIN
     Dosage: 12.5 UG, EVERY HOURS
     Route: 062
     Dates: start: 1999
  7. ZOLPIDEM [Concomitant]
     Active Substance: ZOLPIDEM\ZOLPIDEM TARTRATE
     Indication: SLEEP DISORDER
     Dosage: 10 MG, AS NEEDED, DURATION: SEVERAL YEARS
     Route: 048
  8. LYRICA [Suspect]
     Active Substance: PREGABALIN
     Indication: TREMOR
     Dosage: 75 MG, 1-0-1
     Route: 048
  9. LYRICA [Suspect]
     Active Substance: PREGABALIN
     Dosage: 75 MG, 1-0-0
     Dates: start: 201403

REACTIONS (16)
  - Irritability [Unknown]
  - Restlessness [Unknown]
  - Sense of oppression [Unknown]
  - Sleep disorder [Unknown]
  - Asthenia [Unknown]
  - Decreased interest [Unknown]
  - Disturbance in attention [Unknown]
  - Suicidal ideation [Unknown]
  - Off label use [Unknown]
  - Drug withdrawal syndrome [Not Recovered/Not Resolved]
  - Insomnia [Unknown]
  - Palpitations [Unknown]
  - Adjustment disorder [Unknown]
  - Angina pectoris [Unknown]
  - Dyspnoea [Unknown]
  - Anxiety [Unknown]

NARRATIVE: CASE EVENT DATE: 20140421
